FAERS Safety Report 18152408 (Version 1)
Quarter: 2020Q3

REPORT INFORMATION
  Report Type: Spontaneous
  Country: US (occurrence: US)
  Receive Date: 20200814
  Receipt Date: 20200814
  Transmission Date: 20201103
  Serious: Yes (Other)
  Sender: FDA-Public Use
  Company Number: US-TEVA-2020-US-1813754

PATIENT
  Age: 71 Year
  Sex: Female

DRUGS (3)
  1. FLUTICASONE PROPIONATE AND SALMETEROL [Suspect]
     Active Substance: FLUTICASONE PROPIONATE\SALMETEROL XINAFOATE
     Indication: ASTHMA
     Dosage: FORM STRENGTH: 113/14 MCG
     Route: 065
     Dates: start: 2017, end: 2018
  2. FLUTICASONE PROPIONATE AND SALMETEROL [Suspect]
     Active Substance: FLUTICASONE PROPIONATE\SALMETEROL XINAFOATE
     Route: 065
     Dates: start: 20200802
  3. LUSPATERCEPT. [Suspect]
     Active Substance: LUSPATERCEPT
     Indication: MYELODYSPLASTIC SYNDROME
     Dosage: DOSE: TWO SHOTS OF LUSPATERCEPT THAT LAST FOR 3 WEEKS
     Route: 065

REACTIONS (2)
  - Neoplasm malignant [Unknown]
  - Myelodysplastic syndrome [Unknown]

NARRATIVE: CASE EVENT DATE: 201808
